FAERS Safety Report 8922048 (Version 1)
Quarter: 2012Q4

REPORT INFORMATION
  Report Type: Spontaneous
  Country: US (occurrence: None)
  Receive Date: 20121120
  Receipt Date: 20121120
  Transmission Date: 20130627
  Serious: Yes (Other)
  Sender: FDA-Public Use
  Company Number: None

PATIENT
  Age: 43 Year
  Sex: Female

DRUGS (1)
  1. ORENCIA [Suspect]
     Dosage: 125MG PFS 1 X WEEKLY SUBQ
     Route: 058
     Dates: start: 20120827, end: 20120827

REACTIONS (3)
  - Pain [None]
  - Headache [None]
  - Swelling [None]
